FAERS Safety Report 11439938 (Version 1)
Quarter: 2015Q3

REPORT INFORMATION
  Report Type: Spontaneous
  Country: US (occurrence: US)
  Receive Date: 20150901
  Receipt Date: 20150901
  Transmission Date: 20151125
  Serious: No
  Sender: FDA-Public Use
  Company Number: US-ROCHE-1070262

PATIENT
  Sex: Female

DRUGS (6)
  1. PEGASYS [Suspect]
     Active Substance: PEGINTERFERON ALFA-2A
     Indication: PRODUCT USED FOR UNKNOWN INDICATION
     Dosage: ON AN UNSPECIFIED DATE, DRUG WAS DISCONTINUED FOR 3 MONTHS
     Route: 065
  2. PEGASYS [Suspect]
     Active Substance: PEGINTERFERON ALFA-2A
     Dosage: ON AN UNSPECIFIED DATE, DRUG WAS RESTARTED
     Route: 065
  3. COPEGUS [Suspect]
     Active Substance: RIBAVIRIN
     Indication: PRODUCT USED FOR UNKNOWN INDICATION
     Dosage: ON AN UNSPECIFIED DATE, DRUG WAS DISCONTINUED FOR 3 MONTHS
     Route: 065
  4. COPEGUS [Suspect]
     Active Substance: RIBAVIRIN
     Dosage: ON AN UNSPECIFIED DATE, DRUG WAS RESTARTED.
     Route: 065
  5. TELAPREVIR [Suspect]
     Active Substance: TELAPREVIR
     Indication: PRODUCT USED FOR UNKNOWN INDICATION
     Dosage: ON AN UNSPECIFIED DATE, DRUG WAS DISCONTINUED FOR 3 MONTHS
     Route: 065
  6. TELAPREVIR [Suspect]
     Active Substance: TELAPREVIR
     Dosage: ON AN UNSPECIFIED DATE, DRUG WAS RESTARTED.
     Route: 065

REACTIONS (3)
  - Arthralgia [Unknown]
  - Skin reaction [Unknown]
  - Oral mucosal blistering [Unknown]
